FAERS Safety Report 10337935 (Version 2)
Quarter: 2014Q3

REPORT INFORMATION
  Report Type: Spontaneous
  Country: US (occurrence: US)
  Receive Date: 20140724
  Receipt Date: 20140724
  Transmission Date: 20150326
  Serious: No
  Sender: FDA-Public Use
  Company Number: US-UNITED THERAPEUTICS-UTC-047291

PATIENT
  Age: 37 Year
  Sex: Female
  Weight: 85.71 kg

DRUGS (4)
  1. REMODULIN [Suspect]
     Active Substance: TREPROSTINIL
     Indication: COR PULMONALE CHRONIC
     Dosage: 0.022 ?G/KG/MIN, CONTINUING
     Route: 058
     Dates: start: 20140325
  2. WARFARIN [Concomitant]
     Active Substance: WARFARIN
  3. LETAIRIS [Concomitant]
     Active Substance: AMBRISENTAN
  4. ADCIRCA [Concomitant]
     Active Substance: TADALAFIL

REACTIONS (9)
  - Nausea [Unknown]
  - Headache [Unknown]
  - Infusion site pain [Unknown]
  - Pain in extremity [Unknown]
  - Infusion site pustule [Unknown]
  - Infusion site swelling [Unknown]
  - Musculoskeletal pain [Unknown]
  - Infusion site haemorrhage [Unknown]
  - Pain in jaw [Unknown]

NARRATIVE: CASE EVENT DATE: 201405
